FAERS Safety Report 6577443-3 (Version None)
Quarter: 2010Q1

REPORT INFORMATION
  Report Type: 
  Country: None (occurrence: None)
  Receive Date: 20100211
  Receipt Date: 20100203
  Transmission Date: 20100710
  Serious: Yes (Other)
  Sender: FDA-Public Use
  Company Number: US-ASTRAZENECA-2008UW13224

PATIENT
  Sex: Female
  Weight: 102.1 kg

DRUGS (10)
  1. SEROQUEL [Suspect]
     Indication: BIPOLAR DISORDER
     Route: 048
     Dates: start: 20020101, end: 20060101
  2. HALDOL [Concomitant]
     Indication: BIPOLAR DISORDER
     Dates: start: 20040101
  3. KLONOPIN [Concomitant]
     Indication: BIPOLAR DISORDER
     Dates: start: 20040101
  4. GEODON [Concomitant]
     Indication: BIPOLAR DISORDER
     Dates: start: 20040101, end: 20061201
  5. GEODON [Concomitant]
     Dates: start: 20060101, end: 20060101
  6. ZYPREXA [Concomitant]
     Indication: BIPOLAR DISORDER
     Dates: start: 20060101, end: 20060101
  7. ABILIFY [Concomitant]
     Indication: DEPRESSION
     Dates: start: 20020101
  8. CYMBALTA [Concomitant]
     Indication: DEPRESSION
     Dates: start: 20020101
  9. CLOZARIL [Concomitant]
  10. RISPERDAL [Concomitant]

REACTIONS (4)
  - DIABETIC RETINOPATHY [None]
  - OBESITY [None]
  - OVERDOSE [None]
  - TYPE 2 DIABETES MELLITUS [None]
